FAERS Safety Report 5316950-8 (Version None)
Quarter: 2007Q2

REPORT INFORMATION
  Report Type: 
  Country: None (occurrence: None)
  Receive Date: 20070501
  Receipt Date: 20070501
  Transmission Date: 20071010
  Serious: Yes (Other)
  Sender: FDA-Public Use
  Company Number: None

PATIENT
  Age: 50 Year
  Sex: Male
  Weight: 72.5755 kg

DRUGS (1)
  1. CVS ULTRA STRENGTH MUSCLE RUB   METHYL SALICYLATE 30%  CVS [Suspect]
     Indication: MUSCLE SPASMS
     Dosage: APPLY AS NEEDED   3-4 TIMES A DAY   TOP
     Route: 061
     Dates: start: 20070101, end: 20070415

REACTIONS (3)
  - CONDITION AGGRAVATED [None]
  - GASTROOESOPHAGEAL REFLUX DISEASE [None]
  - PHARMACEUTICAL PRODUCT COMPLAINT [None]
